FAERS Safety Report 12580424 (Version 1)
Quarter: 2016Q3

REPORT INFORMATION
  Report Type: Spontaneous
  Country: US (occurrence: US)
  Receive Date: 20160721
  Receipt Date: 20160721
  Transmission Date: 20161109
  Serious: No
  Sender: FDA-Public Use
  Company Number: US-JAZZ-2016-US-001382

PATIENT
  Sex: Female
  Weight: 52.15 kg

DRUGS (21)
  1. BUSPAR [Concomitant]
     Active Substance: BUSPIRONE HYDROCHLORIDE
     Indication: DEPRESSION
     Dosage: UNK
     Dates: start: 20160119
  2. RELPAX [Concomitant]
     Active Substance: ELETRIPTAN HYDROBROMIDE
     Indication: PRODUCT USED FOR UNKNOWN INDICATION
     Dosage: UNK
     Dates: start: 20140917
  3. XYREM [Suspect]
     Active Substance: SODIUM OXYBATE
     Dosage: 4.5 G, FIRST DOSE
     Route: 048
     Dates: start: 201412
  4. MODAFINIL. [Concomitant]
     Active Substance: MODAFINIL
     Indication: PRODUCT USED FOR UNKNOWN INDICATION
     Dosage: UNK
     Dates: start: 20140101, end: 20141031
  5. DIAMOX SEQUELS ER [Concomitant]
     Indication: PRODUCT USED FOR UNKNOWN INDICATION
     Dosage: UNK
     Dates: start: 20100901, end: 20151031
  6. XYREM [Suspect]
     Active Substance: SODIUM OXYBATE
     Indication: NARCOLEPSY
     Dosage: 2.25 G, BID
     Route: 048
     Dates: start: 201409, end: 201410
  7. EXCEDRIN EXTRA STRENGTH [Concomitant]
     Active Substance: ACETAMINOPHEN\ASPIRIN\CAFFEINE
     Indication: PRODUCT USED FOR UNKNOWN INDICATION
     Dosage: UNK
     Dates: start: 20140917, end: 20160125
  8. FISH OIL [Concomitant]
     Active Substance: FISH OIL
     Indication: PRODUCT USED FOR UNKNOWN INDICATION
     Dosage: UNK
     Dates: start: 20140917, end: 20160125
  9. AIRBORNE [Concomitant]
     Active Substance: HERBALS\MINERALS\VITAMINS
     Indication: PRODUCT USED FOR UNKNOWN INDICATION
     Dosage: UNK
  10. XYREM [Suspect]
     Active Substance: SODIUM OXYBATE
     Dosage: 3.75 G, SECOND DOSE
     Route: 048
     Dates: start: 201412
  11. LUTERA [Concomitant]
     Active Substance: ETHINYL ESTRADIOL\LEVONORGESTREL
     Indication: CONTRACEPTION
     Dosage: UNK
     Dates: start: 20160119
  12. LEXAPRO [Concomitant]
     Active Substance: ESCITALOPRAM OXALATE
     Indication: DEPRESSION
     Dosage: UNK
     Dates: start: 20090901
  13. ADVIL [Concomitant]
     Active Substance: IBUPROFEN
     Indication: PRODUCT USED FOR UNKNOWN INDICATION
     Dosage: UNK
     Dates: start: 20140917
  14. CALCIUM ACETATE. [Concomitant]
     Active Substance: CALCIUM ACETATE
     Indication: PRODUCT USED FOR UNKNOWN INDICATION
     Dosage: UNK
     Dates: start: 20140917, end: 20160125
  15. SUDAFED 12 HOUR [Concomitant]
     Active Substance: PSEUDOEPHEDRINE HYDROCHLORIDE
     Indication: PRODUCT USED FOR UNKNOWN INDICATION
     Dosage: UNK
  16. LAMICTAL [Concomitant]
     Active Substance: LAMOTRIGINE
     Indication: DEPRESSION
     Dosage: UNK
     Dates: start: 20110901
  17. LAMICTAL [Concomitant]
     Active Substance: LAMOTRIGINE
     Indication: BIPOLAR DISORDER
  18. BOTOX [Concomitant]
     Active Substance: ONABOTULINUMTOXINA
     Indication: PRODUCT USED FOR UNKNOWN INDICATION
     Dosage: UNK
     Dates: start: 20160119
  19. ECHINACEA [Concomitant]
     Active Substance: ECHINACEA, UNSPECIFIED
     Indication: PRODUCT USED FOR UNKNOWN INDICATION
     Dosage: UNK
  20. XYREM [Suspect]
     Active Substance: SODIUM OXYBATE
     Indication: CATAPLEXY
     Dosage: 3.75 G, BID
     Route: 048
     Dates: start: 201410, end: 201411
  21. ZINC GLUCONATE [Concomitant]
     Active Substance: ZINC GLUCONATE
     Indication: PRODUCT USED FOR UNKNOWN INDICATION
     Dosage: UNK

REACTIONS (1)
  - Depression [Unknown]
